FAERS Safety Report 21743650 (Version 2)
Quarter: 2022Q4

REPORT INFORMATION
  Report Type: Spontaneous
  Country: CN (occurrence: CN)
  Receive Date: 20221217
  Receipt Date: 20221226
  Transmission Date: 20230112
  Serious: Yes (Other)
  Sender: FDA-Public Use
  Company Number: CN-Accord-291772

PATIENT
  Age: 45 Year
  Sex: Female

DRUGS (7)
  1. FLUOROURACIL [Suspect]
     Active Substance: FLUOROURACIL
     Indication: Gestational trophoblastic tumour
     Dosage: (5-FU) (26-28) MG/(KG*D), AN AVERAGE DAILY AMOUNT OF 25 MG/KG
     Dates: start: 20210727, end: 20210729
  2. ACTINOMYCIN D [Suspect]
     Active Substance: DACTINOMYCIN
     Indication: Gestational trophoblastic tumour
     Dosage: ACTD WITH AN AVERAGE DAILY AMOUNT 5.91 UG/KG
     Dates: start: 20210727, end: 20210729
  3. ACTINOMYCIN D [Suspect]
     Active Substance: DACTINOMYCIN
     Indication: Gestational trophoblastic tumour
     Dosage: ACT-D 5.35 UG/ KG, ACT-D 5.56 UG/KG.
  4. ACTINOMYCIN D [Suspect]
     Active Substance: DACTINOMYCIN
     Indication: Gestational trophoblastic tumour
     Dosage: (4-6) MG/(KG*D)
     Dates: start: 2021
  5. FLUOROURACIL [Suspect]
     Active Substance: FLUOROURACIL
     Indication: Gestational trophoblastic tumour
     Dosage: 5-FU 24.55 MG/KG, 5-FU 25.46 MG/KG
  6. FLUOROURACIL [Suspect]
     Active Substance: FLUOROURACIL
     Indication: Gestational trophoblastic tumour
     Dosage: (5-FU) (26-28) MG/(KG*D), ALSO RECEIVED 28MG/KG
     Dates: start: 20210803
  7. ACTINOMYCIN D [Suspect]
     Active Substance: DACTINOMYCIN
     Indication: Gestational trophoblastic tumour
     Dosage: (4-6) MG/(KG*D)
     Dates: start: 20210803

REACTIONS (3)
  - Erythema multiforme [Recovered/Resolved]
  - Nausea [Not Recovered/Not Resolved]
  - Vomiting [Recovered/Resolved]

NARRATIVE: CASE EVENT DATE: 20210101
